FAERS Safety Report 20877145 (Version 1)
Quarter: 2022Q2

REPORT INFORMATION
  Report Type: Spontaneous
  Country: US (occurrence: None)
  Receive Date: 20220526
  Receipt Date: 20220526
  Transmission Date: 20220721
  Serious: No
  Sender: FDA-Public Use
  Company Number: 2022A189549

PATIENT
  Sex: Male
  Weight: 89.4 kg

DRUGS (1)
  1. SYMBICORT [Suspect]
     Active Substance: BUDESONIDE\FORMOTEROL FUMARATE DIHYDRATE
     Indication: Chronic obstructive pulmonary disease
     Dosage: 160/4.5, 2 INHALATIONS TWICE A DAY
     Route: 055
     Dates: start: 2015

REACTIONS (3)
  - Emphysema [Not Recovered/Not Resolved]
  - Gait disturbance [Unknown]
  - Product prescribing error [Unknown]
